FAERS Safety Report 10423685 (Version 1)
Quarter: 2014Q3

REPORT INFORMATION
  Report Type: Spontaneous
  Country: US (occurrence: None)
  Receive Date: 20140722
  Receipt Date: 20140722
  Transmission Date: 20150326
  Serious: No
  Sender: FDA-Public Use
  Company Number: AEGR00511

PATIENT
  Age: 44 Year
  Sex: Female
  Weight: 86.6 kg

DRUGS (12)
  1. AMITRIPTYLINE (AMITRIPTYLINE) [Concomitant]
     Active Substance: AMITRIPTYLINE
  2. GABAPENTIN (GABAPENTIN) [Concomitant]
     Active Substance: GABAPENTIN
  3. RANITIDINE [Concomitant]
     Active Substance: RANITIDINE\RANITIDINE HYDROCHLORIDE
  4. VITAMINS [Concomitant]
     Active Substance: VITAMINS
  5. OXYCODONE (OXYCODONE) [Concomitant]
     Active Substance: OXYCODONE
  6. RANEXA (RANOLAZINE) [Concomitant]
  7. TRICOR [Concomitant]
     Active Substance: FENOFIBRATE
  8. LIPITOR [Concomitant]
     Active Substance: ATORVASTATIN CALCIUM
  9. PLAVIX (CLOPIDOGREL BISULFATE) [Concomitant]
  10. JUXTAPID [Suspect]
     Active Substance: LOMITAPIDE MESYLATE
     Indication: TYPE IIA HYPERLIPIDAEMIA
     Route: 048
     Dates: start: 201405
  11. FENTANYL (FENTANYL) [Concomitant]
     Active Substance: FENTANYL
  12. OMEGA 3 (FINS OIL) [Concomitant]

REACTIONS (6)
  - Upper respiratory tract infection [None]
  - Abdominal discomfort [None]
  - Hypersensitivity [None]
  - Palpitations [None]
  - Nasopharyngitis [None]
  - Headache [None]

NARRATIVE: CASE EVENT DATE: 201405
